FAERS Safety Report 20775071 (Version 1)
Quarter: 2022Q2

REPORT INFORMATION
  Report Type: Spontaneous
  Country: US (occurrence: US)
  Receive Date: 20220502
  Receipt Date: 20220502
  Transmission Date: 20220721
  Serious: No
  Sender: FDA-Public Use
  Company Number: US-PFIZER INC-202200093151

PATIENT
  Age: 72 Year
  Sex: Female
  Weight: 79.38 kg

DRUGS (1)
  1. PREMARIN [Suspect]
     Active Substance: ESTROGENS, CONJUGATED
     Indication: Urethral disorder
     Dosage: UNK
     Dates: end: 2010

REACTIONS (3)
  - Bladder disorder [Unknown]
  - Off label use [Unknown]
  - Drug effective for unapproved indication [Unknown]
